FAERS Safety Report 5134458-X (Version None)
Quarter: 2006Q4

REPORT INFORMATION
  Report Type: 
  Country: None (occurrence: None)
  Receive Date: 20061025
  Receipt Date: 20061018
  Transmission Date: 20070319
  Serious: Yes (Life-Threatening)
  Sender: FDA-Public Use
  Company Number: AU-PURDUE-USA_2006_0025444

PATIENT
  Age: 76 Year
  Sex: Male

DRUGS (3)
  1. OXYCODONE HCL [Suspect]
     Indication: RENAL PAIN
     Dosage: 5 MG, SINGLE
     Route: 048
     Dates: start: 20060726, end: 20060726
  2. AMOXICILLIN [Concomitant]
  3. ACETAMINOPHEN W/ CODEINE [Concomitant]

REACTIONS (1)
  - SUICIDAL IDEATION [None]
